FAERS Safety Report 24164979 (Version 1)
Quarter: 2024Q3

REPORT INFORMATION
  Report Type: Spontaneous
  Country: JP (occurrence: JP)
  Receive Date: 20240802
  Receipt Date: 20240802
  Transmission Date: 20241017
  Serious: Yes (Hospitalization)
  Sender: Steriscience PTE
  Company Number: JP-STERISCIENCE B.V.-2024-ST-001125

PATIENT
  Age: 5 Decade
  Sex: Male

DRUGS (10)
  1. MYCOPHENOLATE MOFETIL [Interacting]
     Active Substance: MYCOPHENOLATE MOFETIL
     Indication: Lupus nephritis
     Dosage: UNK
     Route: 065
  2. MYCOPHENOLATE MOFETIL [Interacting]
     Active Substance: MYCOPHENOLATE MOFETIL
     Dosage: RECEIVED MYCOPHENOLATE-MOFETIL DOSE WAS INCREASED
     Route: 065
  3. MYCOPHENOLATE MOFETIL [Interacting]
     Active Substance: MYCOPHENOLATE MOFETIL
     Dosage: RECEIVED MYCOPHENOLATE-MOFETIL DOSE WAS INCREASED
     Route: 065
  4. MYCOPHENOLATE MOFETIL [Interacting]
     Active Substance: MYCOPHENOLATE MOFETIL
     Dosage: RECEIVED MYCOPHENOLATE-MOFETIL DOSE WAS REDUCED
     Route: 065
  5. SACUBITRIL\VALSARTAN [Interacting]
     Active Substance: SACUBITRIL\VALSARTAN
     Indication: Blood pressure abnormal
     Dosage: 97/103 MG/DAY
     Route: 065
  6. SACUBITRIL\VALSARTAN [Interacting]
     Active Substance: SACUBITRIL\VALSARTAN
     Dosage: DOSE WAS REDUCED TO 49/51 MG/DAY
     Route: 065
  7. CYCLOPHOSPHAMIDE [Concomitant]
     Active Substance: CYCLOPHOSPHAMIDE
     Indication: Lupus nephritis
     Dosage: RECEIVED CYCLOPHOSPHAMIDE 350-500 MG/M2
     Route: 042
  8. PREDNISOLONE [Concomitant]
     Active Substance: PREDNISOLONE
     Indication: Lupus nephritis
     Dosage: 20 MILLIGRAM, QD
     Route: 065
  9. PREDNISOLONE [Concomitant]
     Active Substance: PREDNISOLONE
     Dosage: 50 MILLIGRAM, QD
     Route: 065
  10. MIZORIBINE [Concomitant]
     Active Substance: MIZORIBINE
     Indication: Lupus nephritis
     Dosage: 150 MILLIGRAM, QD
     Route: 065

REACTIONS (3)
  - Immunosuppressant drug level decreased [None]
  - Drug interaction [Unknown]
  - Off label use [Unknown]
